FAERS Safety Report 22188874 (Version 1)
Quarter: 2023Q2

REPORT INFORMATION
  Report Type: Spontaneous
  Country: US (occurrence: US)
  Receive Date: 20230409
  Receipt Date: 20230409
  Transmission Date: 20230722
  Serious: No
  Sender: FDA-Public Use
  Company Number: US-FERRINGPH-2022FE05822

PATIENT
  Sex: Male
  Weight: 78.1 kg

DRUGS (1)
  1. FIRMAGON [Suspect]
     Active Substance: DEGARELIX ACETATE
     Indication: Prostate cancer
     Route: 065

REACTIONS (2)
  - Injection site pain [Unknown]
  - Injection site pain [Unknown]
